FAERS Safety Report 8374385-8 (Version None)
Quarter: 2012Q2

REPORT INFORMATION
  Report Type: 
  Country: None (occurrence: None)
  Receive Date: 20120521
  Receipt Date: 20120511
  Transmission Date: 20120825
  Serious: Yes (Hospitalization)
  Sender: FDA-Public Use
  Company Number: GB-ASTRAZENECA-2012SE30448

PATIENT
  Age: 39 Year
  Sex: Female
  Weight: 60 kg

DRUGS (4)
  1. CARBAMAZEPINE [Concomitant]
     Indication: EPILEPSY
  2. PROPOFOL [Suspect]
     Indication: GENERAL ANAESTHESIA
     Route: 042
     Dates: start: 20120427, end: 20120427
  3. MIDAZOLAM [Concomitant]
     Indication: GENERAL ANAESTHESIA
     Dates: start: 20120427, end: 20120427
  4. FENTANYL-100 [Concomitant]
     Indication: GENERAL ANAESTHESIA
     Dates: start: 20120427, end: 20120427

REACTIONS (4)
  - GRAND MAL CONVULSION [None]
  - EPILEPSY [None]
  - SEIZURE LIKE PHENOMENA [None]
  - MUSCLE TWITCHING [None]
